FAERS Safety Report 17659406 (Version 1)
Quarter: 2020Q2

REPORT INFORMATION
  Report Type: Spontaneous
  Country: ES (occurrence: ES)
  Receive Date: 20200413
  Receipt Date: 20200413
  Transmission Date: 20200713
  Serious: Yes (Hospitalization)
  Sender: FDA-Public Use
  Company Number: ES-TEVA-2020-ES-1222105

PATIENT
  Age: 90 Year
  Sex: Female

DRUGS (4)
  1. AMLODIPINO 5 MG COMPRIMIDOS EFG, 30 COMPRIMIDOS [Interacting]
     Active Substance: AMLODIPINE BESYLATE
     Indication: HYPERTENSION
     Dosage: 5 MG, 1-0-0; 30 TABLETS
     Route: 048
     Dates: start: 20181212, end: 20190123
  2. CARVEDILOL (2431A) [Suspect]
     Active Substance: CARVEDILOL
     Dosage: 6.25 MG DAY
     Route: 048
     Dates: start: 20181212, end: 20190123
  3. FUROSEMIDA (1615A) [Interacting]
     Active Substance: FUROSEMIDE
     Dosage: 40 MG -40 MG - 0 DAY
     Route: 048
     Dates: start: 20190113, end: 20190123
  4. ALDACTONE [Interacting]
     Active Substance: SPIRONOLACTONE
     Dosage: 25 MG; 1-0-0; 20 TABLETS
     Route: 048
     Dates: start: 20181212, end: 20190123

REACTIONS (3)
  - Acute kidney injury [Recovered/Resolved]
  - Condition aggravated [Recovered/Resolved]
  - Drug interaction [Unknown]

NARRATIVE: CASE EVENT DATE: 20190120
